FAERS Safety Report 9983799 (Version 1)
Quarter: 2014Q1

REPORT INFORMATION
  Report Type: Spontaneous
  Country: US (occurrence: US)
  Receive Date: 20140307
  Receipt Date: 20140307
  Transmission Date: 20141002
  Serious: Yes (Other)
  Sender: FDA-Public Use
  Company Number: US-GLAXOSMITHKLINE-A1063943A

PATIENT
  Sex: 0

DRUGS (2)
  1. FLOVENT [Suspect]
     Indication: PRODUCT USED FOR UNKNOWN INDICATION
     Route: 055
  2. ALBUTEROL [Suspect]
     Indication: PRODUCT USED FOR UNKNOWN INDICATION

REACTIONS (2)
  - Respiratory tract infection [Unknown]
  - Drug ineffective [Unknown]
